FAERS Safety Report 8486427-X (Version None)
Quarter: 2012Q3

REPORT INFORMATION
  Report Type: 
  Country: None (occurrence: None)
  Receive Date: 20120703
  Receipt Date: 20120626
  Transmission Date: 20120928
  Serious: Yes (Other)
  Sender: FDA-Public Use
  Company Number: CHPA2012NL012462

PATIENT
  Sex: Female
  Weight: 61 kg

DRUGS (8)
  1. SCOPOLAMINE [Suspect]
     Dosage: 1 DF, UNK
     Route: 062
     Dates: start: 20120602, end: 20120603
  2. CALCIUM CARBONATE W/CALCIUM GLUCONATE [Concomitant]
     Dosage: 500 MG, BID
     Dates: start: 20111024
  3. ZOLPIDEM TARTRATE [Suspect]
     Dosage: 10 MG, QD
     Dates: start: 20120527, end: 20120603
  4. SCOPOLAMINE [Suspect]
     Indication: MOTION SICKNESS
     Dosage: 1 DF, ONCE/SINGLE
     Route: 062
     Dates: start: 20120529
  5. PROLIA [Concomitant]
     Dosage: 60 MG, Q6MO
     Dates: start: 20120427
  6. EBASTINE [Concomitant]
     Dosage: 10 MG, QD
     Dates: start: 20120427
  7. HYDROCHLOROTHIAZIDE [Concomitant]
     Dosage: 25 MG, QD
     Dates: start: 20060130
  8. METOPROLOL SUCCINATE [Concomitant]
     Dosage: 25 MG, QD
     Dates: start: 20060130

REACTIONS (11)
  - FALL [None]
  - TRANSIENT ISCHAEMIC ATTACK [None]
  - CONFUSIONAL STATE [None]
  - HALLUCINATION [None]
  - ABNORMAL BEHAVIOUR [None]
  - DYSARTHRIA [None]
  - COORDINATION ABNORMAL [None]
  - ANGER [None]
  - AGITATION [None]
  - ATRIAL FIBRILLATION [None]
  - DELIRIUM [None]
